FAERS Safety Report 10004323 (Version 1)
Quarter: 2014Q1

REPORT INFORMATION
  Report Type: Spontaneous
  Country: BR (occurrence: BR)
  Receive Date: 20140312
  Receipt Date: 20140312
  Transmission Date: 20141002
  Serious: Yes (Hospitalization, Other)
  Sender: FDA-Public Use
  Company Number: BR-009507513-1403BRA003827

PATIENT
  Age: 51 Year
  Sex: Female
  Weight: 80 kg

DRUGS (6)
  1. VYTORIN [Suspect]
     Indication: HEPATIC STEATOSIS
     Dosage: 10/20 MG, QD
     Route: 048
  2. CERAZETTE [Suspect]
     Dosage: 75 MICROGRAM, QD
     Route: 048
     Dates: end: 20140224
  3. CERAZETTE [Suspect]
     Dosage: 75 MICROGRAM, QD
     Route: 048
     Dates: start: 20140227
  4. BENICAR [Concomitant]
     Indication: HYPERTENSION
     Dosage: 1 TABLET, QD
     Route: 048
     Dates: start: 2004
  5. CONCOR [Concomitant]
     Indication: HYPERTENSION
     Dosage: 5 MG, QD
     Route: 048
     Dates: start: 2004
  6. GLIFAGE [Concomitant]
     Indication: DIABETES PROPHYLAXIS
     Dosage: 500 MG, QAM
     Route: 048
     Dates: start: 2012

REACTIONS (5)
  - Thyroid nodule removal [Recovered/Resolved]
  - Thyroid neoplasm [Recovered/Resolved with Sequelae]
  - Metrorrhagia [Not Recovered/Not Resolved]
  - Drug administration error [Unknown]
  - Off label use [Unknown]
